FAERS Safety Report 6140088-3 (Version None)
Quarter: 2009Q1

REPORT INFORMATION
  Report Type: 
  Country: None (occurrence: None)
  Receive Date: 20090324
  Receipt Date: 20090317
  Transmission Date: 20090719
  Serious: Yes (Hospitalization)
  Sender: FDA-Public Use
  Company Number: GXKR2009DK03468

PATIENT
  Age: 69 Year
  Sex: Male

DRUGS (9)
  1. ENALAPRIL MALEATE [Suspect]
     Dosage: 20 MG/DAY, ORAL
     Route: 048
     Dates: start: 20011109
  2. RASILEZ (ALISKIREN) FILM-COATED TABLET, 150MG [Suspect]
     Indication: HYPERTENSION
     Dosage: 150 MG/DAY, ORAL
     Route: 048
     Dates: start: 20080812, end: 20090306
  3. CENTYL MITE W/POTASSIUM CHLORIDE (BENDROFLUMETHIAZIDE, POTASSIUM CHLOR [Concomitant]
  4. GLYBURIDE [Concomitant]
  5. HJERTEMAGNYL ^NYCOMED^ (ACETYLSALICYLIC ACID, MAGNESIUM OXIDE) [Concomitant]
  6. MODAFINIL [Concomitant]
  7. JANUVIA [Concomitant]
  8. CLOMIPRAMINE HCL [Concomitant]
  9. METFORMIN HCL [Concomitant]

REACTIONS (2)
  - DRUG INTERACTION [None]
  - HYPERSENSITIVITY [None]
